FAERS Safety Report 7624700-5 (Version None)
Quarter: 2011Q3

REPORT INFORMATION
  Report Type: 
  Country: None (occurrence: None)
  Receive Date: 20110720
  Receipt Date: 20110713
  Transmission Date: 20111222
  Serious: Yes (Other)
  Sender: FDA-Public Use
  Company Number: US-BAYER-2011-061269

PATIENT
  Age: 28 Year
  Sex: Female

DRUGS (2)
  1. IBUPROFEN [Concomitant]
     Dosage: UNK
     Route: 048
     Dates: start: 20110201
  2. MIRENA [Suspect]
     Indication: CONTRACEPTION
     Dosage: 20 ?G, CONT
     Route: 015
     Dates: start: 20110201, end: 20110712

REACTIONS (4)
  - COMPLICATION OF DEVICE INSERTION [None]
  - POST PROCEDURAL HAEMORRHAGE [None]
  - DEVICE EXPULSION [None]
  - ABDOMINAL PAIN [None]
